FAERS Safety Report 12233503 (Version 1)
Quarter: 2016Q2

REPORT INFORMATION
  Report Type: Spontaneous
  Country: US (occurrence: None)
  Receive Date: 20160401
  Receipt Date: 20160401
  Transmission Date: 20160815
  Serious: Yes (Hospitalization)
  Sender: FDA-Public Use
  Company Number: None

PATIENT
  Age: 46 Year
  Sex: Male
  Weight: 97.52 kg

DRUGS (1)
  1. METHYLNALTREXONE, 12 MCG [Suspect]
     Active Substance: METHYLNALTREXONE
     Dosage: ONCE X2
     Route: 058

REACTIONS (6)
  - Gastrointestinal necrosis [None]
  - Large intestine perforation [None]
  - Constipation [None]
  - Leukocytosis [None]
  - Pneumatosis intestinalis [None]
  - Neutrophilia [None]

NARRATIVE: CASE EVENT DATE: 20151103
